FAERS Safety Report 22856772 (Version 2)
Quarter: 2023Q4

REPORT INFORMATION
  Report Type: Spontaneous
  Country: US (occurrence: US)
  Receive Date: 20230823
  Receipt Date: 20231117
  Transmission Date: 20240109
  Serious: No
  Sender: FDA-Public Use
  Company Number: US-Stemline Therapeutics, Inc.-2023ST001655

PATIENT
  Age: 68 Year
  Sex: Female

DRUGS (2)
  1. ORSERDU [Suspect]
     Active Substance: ELACESTRANT
     Indication: Product used for unknown indication
     Route: 048
     Dates: start: 20230616
  2. ORSERDU [Suspect]
     Active Substance: ELACESTRANT
     Dosage: 258 MG (3* 86 TABLETS ONCE A DAY)
     Route: 048
     Dates: start: 20230908

REACTIONS (2)
  - Drug ineffective [Unknown]
  - Fatigue [Unknown]
